FAERS Safety Report 5627869-7 (Version None)
Quarter: 2008Q1

REPORT INFORMATION
  Report Type: 
  Country: None (occurrence: None)
  Receive Date: 20080214
  Receipt Date: 20080214
  Transmission Date: 20080703
  Serious: No
  Sender: FDA-Public Use
  Company Number: None

PATIENT
  Sex: Female
  Weight: 80.9 kg

DRUGS (3)
  1. TAXOL [Suspect]
     Dosage: 17 MG
  2. CISPLATIN [Suspect]
     Dosage: 96 MG
  3. DOXORUBICIN HYDROCHLORIDE [Suspect]
     Dosage: 86 MG

REACTIONS (1)
  - ANAPHYLACTIC REACTION [None]
